FAERS Safety Report 8614783-8 (Version None)
Quarter: 2012Q3

REPORT INFORMATION
  Report Type: 
  Country: None (occurrence: None)
  Receive Date: 20120823
  Receipt Date: 20120822
  Transmission Date: 20120928
  Serious: Yes (Other)
  Sender: FDA-Public Use
  Company Number: US-PFIZER INC-2012206530

PATIENT
  Age: 69 Year
  Sex: Female
  Weight: 51.247 kg

DRUGS (2)
  1. XANAX [Concomitant]
     Indication: INSOMNIA
     Dosage: 0.5 MG, AS NEEDED
  2. ZOLOFT [Suspect]
     Indication: ANXIETY DISORDER
     Dosage: 25 MG, 1X/DAY
     Route: 048
     Dates: start: 20120822

REACTIONS (4)
  - MENTAL IMPAIRMENT [None]
  - DISTURBANCE IN ATTENTION [None]
  - DISSOCIATION [None]
  - FEELING ABNORMAL [None]
